FAERS Safety Report 17655425 (Version 2)
Quarter: 2020Q2

REPORT INFORMATION
  Report Type: Spontaneous
  Country: US (occurrence: US)
  Receive Date: 20200410
  Receipt Date: 20200423
  Transmission Date: 20200713
  Serious: No
  Sender: FDA-Public Use
  Company Number: US-PFIZER INC-2020144356

PATIENT
  Age: 53 Year
  Sex: Male

DRUGS (2)
  1. XELJANZ [Suspect]
     Active Substance: TOFACITINIB CITRATE
     Dosage: 5 MG, 1X/DAY
     Route: 048
     Dates: end: 20200406
  2. XELJANZ [Suspect]
     Active Substance: TOFACITINIB CITRATE
     Dosage: 5 MG, 2X/DAY (1BID)
     Route: 048
     Dates: start: 20191224

REACTIONS (5)
  - Stomatitis [Recovering/Resolving]
  - Oral herpes [Unknown]
  - Lip swelling [Recovering/Resolving]
  - Drug hypersensitivity [Unknown]
  - Oral pain [Unknown]
